FAERS Safety Report 8116409-9 (Version None)
Quarter: 2012Q1

REPORT INFORMATION
  Report Type: 
  Country: None (occurrence: None)
  Receive Date: 20120206
  Receipt Date: 20120126
  Transmission Date: 20120608
  Serious: Yes (Hospitalization)
  Sender: FDA-Public Use
  Company Number: US-JNJFOC-20120112469

PATIENT
  Sex: Female
  Weight: 54.3 kg

DRUGS (4)
  1. REMICADE [Suspect]
     Route: 042
     Dates: start: 20060427
  2. MESALAMINE [Concomitant]
  3. REMICADE [Suspect]
     Indication: CROHN'S DISEASE
     Route: 042
     Dates: start: 20060301
  4. CANASA [Concomitant]

REACTIONS (2)
  - CROHN'S DISEASE [None]
  - CONDITION AGGRAVATED [None]
